FAERS Safety Report 8421816-0 (Version None)
Quarter: 2012Q2

REPORT INFORMATION
  Report Type: 
  Country: None (occurrence: None)
  Receive Date: 20120608
  Receipt Date: 20120530
  Transmission Date: 20120825
  Serious: Yes (Other)
  Sender: FDA-Public Use
  Company Number: JP-SANOFI-AVENTIS-2012SA040416

PATIENT
  Age: 53 Year
  Sex: Female

DRUGS (7)
  1. CYCLOSPORINE [Concomitant]
     Indication: SYSTEMIC LUPUS ERYTHEMATOSUS
  2. HYDROXYCHLOROQUINE SULFATE [Suspect]
     Indication: SYSTEMIC LUPUS ERYTHEMATOSUS
     Route: 065
  3. LORNOXICAM [Concomitant]
     Indication: ARTHRALGIA
  4. HYDROXYCHLOROQUINE SULFATE [Suspect]
     Dosage: RESUMED
     Route: 065
  5. NAPROXEN [Concomitant]
     Indication: ARTHRALGIA
  6. PREDNISOLONE [Concomitant]
     Indication: SYSTEMIC LUPUS ERYTHEMATOSUS
  7. LOXOPROFEN [Concomitant]
     Indication: ARTHRALGIA

REACTIONS (5)
  - ARTHRALGIA [None]
  - SYSTEMIC LUPUS ERYTHEMATOSUS [None]
  - MALAISE [None]
  - REBOUND EFFECT [None]
  - SKIN LESION [None]
